FAERS Safety Report 22004604 (Version 1)
Quarter: 2023Q1

REPORT INFORMATION
  Report Type: Spontaneous
  Country: HU (occurrence: US)
  Receive Date: 20230217
  Receipt Date: 20230217
  Transmission Date: 20230417
  Serious: Yes (Other)
  Sender: FDA-Public Use
  Company Number: HU-HALEON-USCH2023GSK007094

PATIENT

DRUGS (1)
  1. FLUTICASONE PROPIONATE [Suspect]
     Active Substance: FLUTICASONE PROPIONATE
     Indication: Acute sinusitis
     Dosage: UNK

REACTIONS (5)
  - Pain [Unknown]
  - Rhinalgia [Unknown]
  - Nasopharyngitis [Unknown]
  - Nasal discomfort [Unknown]
  - Product tampering [Unknown]
